FAERS Safety Report 15202686 (Version 1)
Quarter: 2018Q3

REPORT INFORMATION
  Report Type: Spontaneous
  Country: US (occurrence: US)
  Receive Date: 20180627
  Receipt Date: 20180627
  Transmission Date: 20181010
  Serious: Yes (Other)
  Sender: FDA-Public Use
  Company Number: None

PATIENT
  Sex: Female
  Weight: 92.7 kg

DRUGS (1)
  1. MOMETASONE [Suspect]
     Active Substance: MOMETASONE

REACTIONS (3)
  - Urticaria [None]
  - Swelling face [None]
  - Swollen tongue [None]
